FAERS Safety Report 10037404 (Version 1)
Quarter: 2014Q1

REPORT INFORMATION
  Report Type: Spontaneous
  Country: US (occurrence: None)
  Receive Date: 20140306
  Receipt Date: 20140306
  Transmission Date: 20141002
  Serious: Yes (Other)
  Sender: FDA-Public Use
  Company Number: 163-21880-13063972

PATIENT
  Age: 84 Year
  Sex: Female

DRUGS (2)
  1. REVLIMID [Suspect]
     Indication: PLASMA CELL MYELOMA
     Route: 048
     Dates: start: 20130504, end: 20130528
  2. MAGNESIUM (MAGNESIUM) (UNKNOWN) [Concomitant]

REACTIONS (3)
  - Diarrhoea [None]
  - Hypotension [None]
  - Dehydration [None]
